FAERS Safety Report 7374785-9 (Version None)
Quarter: 2011Q1

REPORT INFORMATION
  Report Type: 
  Country: None (occurrence: None)
  Receive Date: 20110325
  Receipt Date: 20101108
  Transmission Date: 20110831
  Serious: No
  Sender: FDA-Public Use
  Company Number: US-MYLANLABS-2010S1020633

PATIENT
  Age: 52 Year
  Sex: Female
  Weight: 68.04 kg

DRUGS (6)
  1. FENTANYL-100 [Suspect]
     Indication: PAIN
     Dosage: CHANGED Q48H
     Route: 062
     Dates: start: 20100501
  2. DILAUDID [Concomitant]
     Indication: PAIN
  3. FENTANYL-100 [Suspect]
     Indication: ARTHRALGIA
     Dosage: CHANGED Q48H
     Route: 062
     Dates: start: 20100501
  4. GLUCOPHAGE [Concomitant]
     Indication: DIABETES MELLITUS
  5. FENTANYL-100 [Suspect]
     Indication: NECK PAIN
     Dosage: CHANGED Q48H
     Route: 062
     Dates: start: 20100501
  6. FENTANYL-100 [Suspect]
     Indication: BACK PAIN
     Dosage: CHANGED Q48H
     Route: 062
     Dates: start: 20100501

REACTIONS (4)
  - DRUG WITHDRAWAL SYNDROME [None]
  - TREMOR [None]
  - DRUG INEFFECTIVE [None]
  - FEELING COLD [None]
